FAERS Safety Report 10996186 (Version 1)
Quarter: 2015Q2

REPORT INFORMATION
  Report Type: Other
  Country: IT (occurrence: IT)
  Receive Date: 20150407
  Receipt Date: 20150407
  Transmission Date: 20150821
  Serious: Yes (Other)
  Sender: FDA-Public Use
  Company Number: IT-MYLANLABS-2015M1009232

PATIENT

DRUGS (1)
  1. SIMVASTATINA [Suspect]
     Active Substance: SIMVASTATIN
     Indication: DYSLIPIDAEMIA
     Dosage: 1 DF, TOTAL
     Route: 048
     Dates: start: 20150221, end: 20150221

REACTIONS (4)
  - Hypersensitivity [Recovering/Resolving]
  - Salivary hypersecretion [Recovering/Resolving]
  - Dyspnoea [Recovering/Resolving]
  - Throat tightness [Recovering/Resolving]

NARRATIVE: CASE EVENT DATE: 20150221
